FAERS Safety Report 14330418 (Version 1)
Quarter: 2017Q4

REPORT INFORMATION
  Report Type: Spontaneous
  Country: AT (occurrence: AT)
  Receive Date: 20171227
  Receipt Date: 20171227
  Transmission Date: 20180321
  Serious: Yes (Other)
  Sender: FDA-Public Use
  Company Number: AT-MYLANLABS-2017M1080463

PATIENT
  Age: 30 Year
  Sex: Male

DRUGS (21)
  1. LEPONEX [Suspect]
     Active Substance: CLOZAPINE
     Indication: PRODUCT USED FOR UNKNOWN INDICATION
     Dosage: 300 MG, UNK
  2. LEPONEX [Suspect]
     Active Substance: CLOZAPINE
     Dosage: 75 MG, UNK
     Dates: start: 20151214, end: 20151216
  3. ABILIFY [Suspect]
     Active Substance: ARIPIPRAZOLE
     Dosage: 15 MG, UNK
     Dates: start: 20151207, end: 20160201
  4. ABILIFY [Suspect]
     Active Substance: ARIPIPRAZOLE
     Dosage: 10 MG, UNK
     Dates: start: 20160202, end: 20160202
  5. SEROQUEL [Concomitant]
     Active Substance: QUETIAPINE FUMARATE
     Indication: PRODUCT USED FOR UNKNOWN INDICATION
     Dosage: 100 MG, UNK
     Dates: start: 20151218, end: 20151226
  6. MIRTABENE [Concomitant]
     Active Substance: MIRTAZAPINE
     Indication: PRODUCT USED FOR UNKNOWN INDICATION
     Dosage: 30 MG, UNK
  7. SEROQUEL [Concomitant]
     Active Substance: QUETIAPINE FUMARATE
     Dosage: 50 MG, UNK
     Dates: start: 20151227, end: 20160125
  8. LEPONEX [Suspect]
     Active Substance: CLOZAPINE
     Dosage: 100 MG, UNK
     Dates: start: 20151217, end: 20151220
  9. LEPONEX [Suspect]
     Active Substance: CLOZAPINE
     Dosage: 250 MG, UNK
     Dates: start: 20151223, end: 20160120
  10. FERROGRADUMET [Concomitant]
     Indication: PRODUCT USED FOR UNKNOWN INDICATION
     Dosage: 105 MG, UNK
     Route: 048
     Dates: start: 20151223, end: 20160202
  11. ABILIFY [Suspect]
     Active Substance: ARIPIPRAZOLE
     Dosage: 10 MG, UNK
     Dates: start: 20151113, end: 20151206
  12. INDERAL [Concomitant]
     Active Substance: PROPRANOLOL HYDROCHLORIDE
     Dosage: 80 MG, UNK
     Dates: start: 20151207, end: 20160118
  13. MIRTAZAPINE. [Concomitant]
     Active Substance: MIRTAZAPINE
     Indication: PRODUCT USED FOR UNKNOWN INDICATION
     Dosage: 30 MG, UNK
  14. QUETIAPINE. [Concomitant]
     Active Substance: QUETIAPINE
     Indication: PRODUCT USED FOR UNKNOWN INDICATION
     Dosage: 50 MG, UNK
     Dates: start: 20151227, end: 20160125
  15. FERROUS SULFATE. [Concomitant]
     Active Substance: FERROUS SULFATE
     Indication: PRODUCT USED FOR UNKNOWN INDICATION
     Dosage: UNK
     Route: 048
     Dates: start: 20151223, end: 20160202
  16. LEPONEX [Suspect]
     Active Substance: CLOZAPINE
     Dosage: 5 MG, UNK
     Dates: start: 20151210, end: 20151213
  17. LEPONEX [Suspect]
     Active Substance: CLOZAPINE
     Dosage: 150 MG, UNK
     Dates: start: 20151221, end: 20151222
  18. ABILIFY [Suspect]
     Active Substance: ARIPIPRAZOLE
     Indication: PRODUCT USED FOR UNKNOWN INDICATION
     Dosage: 5 MG, UNK
     Dates: start: 20151111, end: 20151112
  19. INDERAL [Concomitant]
     Active Substance: PROPRANOLOL HYDROCHLORIDE
     Indication: PRODUCT USED FOR UNKNOWN INDICATION
     Dosage: 60 MG, UNK
  20. QUETIAPINE. [Concomitant]
     Active Substance: QUETIAPINE
     Dosage: 100 UNK, UNK
     Dates: start: 20151218, end: 20151226
  21. ABILIFY [Suspect]
     Active Substance: ARIPIPRAZOLE
     Dosage: 5 MG, UNK
     Dates: start: 20160203, end: 20160205

REACTIONS (4)
  - Irregular sleep wake rhythm disorder [Unknown]
  - Fatigue [Unknown]
  - Somnolence [Unknown]
  - Salivary hypersecretion [Recovering/Resolving]

NARRATIVE: CASE EVENT DATE: 20151226
